FAERS Safety Report 9960387 (Version 1)
Quarter: 2014Q1

REPORT INFORMATION
  Report Type: Report from Study
  Country: US (occurrence: US)
  Receive Date: 20140305
  Receipt Date: 20140305
  Transmission Date: 20141002
  Serious: No
  Sender: FDA-Public Use
  Company Number: US-ABBVIE-13P-163-1104572-00

PATIENT
  Age: 39 Year
  Sex: Male
  Weight: 68.1 kg

DRUGS (3)
  1. HUMIRA [Suspect]
     Indication: CROHN^S DISEASE
     Dates: start: 2011
  2. COLACE [Concomitant]
     Indication: DEFAECATION URGENCY
  3. OXYCODONE [Concomitant]
     Indication: PAIN

REACTIONS (4)
  - Pain [Not Recovered/Not Resolved]
  - Nausea [Recovering/Resolving]
  - Nasopharyngitis [Recovering/Resolving]
  - Decreased appetite [Recovering/Resolving]
